FAERS Safety Report 25563556 (Version 3)
Quarter: 2025Q3

REPORT INFORMATION
  Report Type: Report from Study
  Country: US (occurrence: US)
  Receive Date: 20250716
  Receipt Date: 20250917
  Transmission Date: 20251020
  Serious: No
  Sender: SUNOVION
  Company Number: US-SMPA-2025SPA008083AA

PATIENT
  Age: 68 Year
  Sex: Male

DRUGS (6)
  1. ORGOVYX [Suspect]
     Active Substance: RELUGOLIX
     Indication: Prostate cancer
     Route: 048
  2. ORGOVYX [Suspect]
     Active Substance: RELUGOLIX
     Route: 048
  3. FLUTICASONE [Concomitant]
     Active Substance: FLUTICASONE
  4. LORATADINE [Concomitant]
     Active Substance: LORATADINE
  5. TAMSULOSIN [Concomitant]
     Active Substance: TAMSULOSIN
  6. WIXELA INHUB [Concomitant]
     Active Substance: FLUTICASONE PROPIONATE\SALMETEROL XINAFOATE

REACTIONS (3)
  - Somnolence [Unknown]
  - Fatigue [Unknown]
  - Product dose omission issue [Recovered/Resolved]
